FAERS Safety Report 10721826 (Version 1)
Quarter: 2015Q1

REPORT INFORMATION
  Report Type: Spontaneous
  Country: US (occurrence: US)
  Receive Date: 20150119
  Receipt Date: 20150119
  Transmission Date: 20150721
  Serious: No
  Sender: FDA-Public Use
  Company Number: US-BAUSCH-BL-2014-001637

PATIENT
  Sex: Male

DRUGS (1)
  1. ALAWAY [Suspect]
     Active Substance: KETOTIFEN FUMARATE
     Indication: EYE ALLERGY
     Dosage: 2 DROPS ONCE A DAY
     Route: 047
     Dates: start: 201403, end: 20140323

REACTIONS (2)
  - Eye pain [Recovering/Resolving]
  - Drug effect decreased [Unknown]

NARRATIVE: CASE EVENT DATE: 201403
